FAERS Safety Report 8582271-3 (Version None)
Quarter: 2012Q3

REPORT INFORMATION
  Report Type: 
  Country: None (occurrence: None)
  Receive Date: 20120809
  Receipt Date: 20120731
  Transmission Date: 20120928
  Serious: Yes (Other)
  Sender: FDA-Public Use
  Company Number: GB-ASTRAZENECA-2012SE42653

PATIENT
  Age: 28080 Day
  Sex: Female
  Weight: 65 kg

DRUGS (10)
  1. OMEPRAZOLE [Concomitant]
     Indication: GASTRITIS
     Route: 048
     Dates: start: 20080101
  2. LANTUS [Concomitant]
     Indication: DIABETES MELLITUS
     Route: 058
  3. CALCIUM+COLECALCIFEROL [Concomitant]
     Indication: BONE DISORDER
     Dosage: DAILY
     Route: 048
     Dates: start: 20080101
  4. RANITIDINE [Concomitant]
     Indication: GASTRITIS
     Route: 048
     Dates: start: 19930101
  5. ATENOLOL [Concomitant]
     Indication: BLOOD PRESSURE ABNORMAL
     Route: 048
     Dates: start: 19930101
  6. CRESTOR [Suspect]
     Indication: BLOOD CHOLESTEROL INCREASED
     Route: 048
     Dates: start: 20080711, end: 20120314
  7. LEVOTHYROXINE SODIUM [Concomitant]
     Indication: HYPOTHYROIDISM
     Route: 048
     Dates: start: 20040101
  8. HUMALOG [Concomitant]
     Indication: DIABETES MELLITUS
     Route: 058
  9. JANUVIA [Concomitant]
     Indication: DIABETES MELLITUS
     Route: 048
     Dates: start: 20120307
  10. SIMVASTATIN [Concomitant]
     Dates: start: 20120208, end: 20120309

REACTIONS (2)
  - BLOOD GLUCOSE INCREASED [None]
  - MUSCLE SPASMS [None]
